FAERS Safety Report 12302353 (Version 1)
Quarter: 2016Q2

REPORT INFORMATION
  Report Type: Spontaneous
  Country: PL (occurrence: PL)
  Receive Date: 20160425
  Receipt Date: 20160425
  Transmission Date: 20160815
  Serious: Yes (Hospitalization)
  Sender: FDA-Public Use
  Company Number: PL-HQ SPECIALTY-PL-2016INT000193

PATIENT
  Age: 35 Year
  Sex: Male

DRUGS (4)
  1. CISPLATIN. [Suspect]
     Active Substance: CISPLATIN
     Indication: SEMINOMA
     Dosage: 42 MG, UNK
  2. BLEOMYCIN [Suspect]
     Active Substance: BLEOMYCIN SULFATE
     Indication: SEMINOMA
     Dosage: 30 MG, UNK
  3. PREDNISONE. [Suspect]
     Active Substance: PREDNISONE
     Indication: SEMINOMA
     Dosage: 10 MG, UNK
  4. ETOPOSIDE. [Suspect]
     Active Substance: ETOPOSIDE
     Indication: SEMINOMA
     Dosage: 210 MG, UNK

REACTIONS (1)
  - Acute coronary syndrome [Unknown]
